FAERS Safety Report 19815008 (Version 1)
Quarter: 2021Q3

REPORT INFORMATION
  Report Type: Spontaneous
  Country: CN (occurrence: CN)
  Receive Date: 20210910
  Receipt Date: 20210910
  Transmission Date: 20211014
  Serious: Yes (Hospitalization, Other)
  Sender: FDA-Public Use
  Company Number: CN-BAYER-2021-204265

PATIENT
  Age: 29 Year
  Sex: Female
  Weight: 95 kg

DRUGS (8)
  1. DROSPIRENONE + ETHINYLESTRADIOL 20?G (24+4) [Suspect]
     Active Substance: DROSPIRENONE\ETHINYL ESTRADIOL
     Indication: COITAL BLEEDING
     Dosage: 1 DF, TID
     Route: 048
     Dates: start: 20191125, end: 20191127
  2. DROSPIRENONE + ETHINYLESTRADIOL 20?G (24+4) [Suspect]
     Active Substance: DROSPIRENONE\ETHINYL ESTRADIOL
     Indication: COITAL BLEEDING
     Dosage: 1 DF, BID
     Route: 048
     Dates: start: 20191128, end: 20191128
  3. LEVONORGESTREL. [Suspect]
     Active Substance: LEVONORGESTREL
     Indication: ENDOMETRIAL DISORDER
  4. DROSPIRENONE + ETHINYLESTRADIOL 20?G (24+4) [Suspect]
     Active Substance: DROSPIRENONE\ETHINYL ESTRADIOL
     Indication: COITAL BLEEDING
     Dosage: 1 DF, TID
     Route: 048
     Dates: start: 20191129, end: 20191129
  5. METFORMIN [Concomitant]
     Active Substance: METFORMIN HYDROCHLORIDE
     Route: 048
  6. DROSPIRENONE + ETHINYLESTRADIOL 30?G [Suspect]
     Active Substance: DROSPIRENONE\ETHINYL ESTRADIOL
     Indication: MENSTRUAL CYCLE MANAGEMENT
     Dosage: 1 DF, QD (AFTER 21 DAYS OF EACH TREATMENT CYCLE, STOP FOR 7 DAYS BEFORE STARTING THE NEXT TREATMENT
     Route: 048
     Dates: start: 201907, end: 20191103
  7. DROSPIRENONE + ETHINYLESTRADIOL 20?G (24+4) [Suspect]
     Active Substance: DROSPIRENONE\ETHINYL ESTRADIOL
     Indication: COITAL BLEEDING
     Dosage: 1 DF, QID
     Route: 048
     Dates: start: 20191130, end: 20191202
  8. LEVONORGESTREL. [Suspect]
     Active Substance: LEVONORGESTREL
     Indication: ABNORMAL UTERINE BLEEDING
     Dosage: 20 ?G PER DAY, CONTINUOUSLY
     Route: 015
     Dates: start: 20191202

REACTIONS (11)
  - Abnormal uterine bleeding [Recovered/Resolved]
  - Abnormal withdrawal bleeding [Recovered/Resolved]
  - Blood loss anaemia [Recovering/Resolving]
  - Off label use [None]
  - Therapeutic product effective for unapproved indication [None]
  - Product use in unapproved indication [None]
  - Off label use of device [None]
  - Coital bleeding [Recovering/Resolving]
  - Syncope [None]
  - Haemoglobin decreased [Recovering/Resolving]
  - Vaginal haemorrhage [Recovered/Resolved]

NARRATIVE: CASE EVENT DATE: 201907
